FAERS Safety Report 15647003 (Version 1)
Quarter: 2018Q4

REPORT INFORMATION
  Report Type: Spontaneous
  Country: ES (occurrence: ES)
  Receive Date: 20181122
  Receipt Date: 20181122
  Transmission Date: 20190205
  Serious: Yes (Hospitalization)
  Sender: FDA-Public Use
  Company Number: ES-TEVA-2018-ES-977209

PATIENT
  Age: 68 Year
  Sex: Male

DRUGS (10)
  1. AZATHIOPRINE. [Concomitant]
     Active Substance: AZATHIOPRINE
     Route: 065
  2. ATORVASTATIN [Concomitant]
     Active Substance: ATORVASTATIN
     Route: 065
  3. DUTASTERIDE/TAMSULOSIN [Concomitant]
     Route: 065
  4. CALCIFEDIOL [Concomitant]
     Active Substance: CALCIFEDIOL
     Route: 065
  5. ENALAPRIL [Concomitant]
     Active Substance: ENALAPRIL
     Route: 065
  6. CICLOSPORIN [Suspect]
     Active Substance: CYCLOSPORINE
     Indication: IMMUNOSUPPRESSION
     Route: 065
     Dates: start: 1997, end: 201709
  7. ACENOCOUMAROL [Concomitant]
     Active Substance: ACENOCOUMAROL
     Dosage: AT A DOSE BASED ON THE INR
     Route: 065
  8. OMEPRAZOLE. [Concomitant]
     Active Substance: OMEPRAZOLE
     Route: 065
  9. INSULIN GLULISINE [Concomitant]
     Active Substance: INSULIN GLULISINE
     Route: 065
  10. INSULIN GLARGINE [Concomitant]
     Active Substance: INSULIN GLARGINE
     Route: 065

REACTIONS (6)
  - Neurotoxicity [Recovered/Resolved with Sequelae]
  - Chorea [Recovered/Resolved]
  - Hypotonia [Recovered/Resolved]
  - Choking [Recovered/Resolved]
  - Cognitive disorder [Not Recovered/Not Resolved]
  - Gait disturbance [Recovered/Resolved]
